FAERS Safety Report 18639186 (Version 2)
Quarter: 2021Q2

REPORT INFORMATION
  Report Type: Spontaneous
  Country: US (occurrence: US)
  Receive Date: 20201218
  Receipt Date: 20210420
  Transmission Date: 20210717
  Serious: Yes (Life-Threatening, Hospitalization, Other)
  Sender: FDA-Public Use
  Company Number: US-DRREDDYS-USA/USA/20/0130081

PATIENT
  Age: 7 Year
  Sex: Female
  Weight: 30 kg

DRUGS (3)
  1. HEPARIN SODIUM. [Suspect]
     Active Substance: HEPARIN SODIUM
     Indication: ANTICOAGULANT THERAPY
  2. OXYGEN. [Concomitant]
     Active Substance: OXYGEN
     Indication: LUNG ASSIST DEVICE THERAPY
  3. OXYGEN. [Concomitant]
     Active Substance: OXYGEN

REACTIONS (1)
  - Pulmonary haemorrhage [Recovered/Resolved]
